FAERS Safety Report 10086242 (Version 1)
Quarter: 2014Q2

REPORT INFORMATION
  Report Type: Spontaneous
  Country: JP (occurrence: JP)
  Receive Date: 20140418
  Receipt Date: 20140418
  Transmission Date: 20141212
  Serious: Yes (Other)
  Sender: FDA-Public Use
  Company Number: JP-ASTELLAS-2014JP003361

PATIENT
  Age: 6 Decade
  Sex: Female

DRUGS (5)
  1. GRACEPTOR [Suspect]
     Indication: KIDNEY TRANSPLANT REJECTION
     Dosage: 1.0 MG, TWICE DAILY
     Route: 048
  2. GRACEPTOR [Interacting]
     Indication: KIDNEY TRANSPLANT REJECTION
     Dosage: 0.5 MG, TWICE DAILY
     Route: 048
  3. LONASEN [Interacting]
     Indication: DELUSIONAL DISORDER, UNSPECIFIED TYPE
  4. CELLCEPT                           /01275102/ [Concomitant]
     Indication: KIDNEY TRANSPLANT REJECTION
  5. MEDROL                             /00049601/ [Concomitant]
     Indication: KIDNEY TRANSPLANT REJECTION

REACTIONS (3)
  - Delusional disorder, unspecified type [Unknown]
  - Drug interaction [Unknown]
  - Intentional product misuse [Unknown]
